FAERS Safety Report 9294130 (Version 3)
Quarter: 2013Q4

REPORT INFORMATION
  Report Type: Spontaneous
  Country: US (occurrence: US)
  Receive Date: 20130516
  Receipt Date: 20131017
  Transmission Date: 20140711
  Serious: No
  Sender: FDA-Public Use
  Company Number: US-ASTRAZENECA-2013SE30575

PATIENT
  Age: 6 Year
  Sex: Male
  Weight: 26.3 kg

DRUGS (6)
  1. PULMICORT [Suspect]
     Indication: ASTHMA
     Route: 055
     Dates: start: 2013, end: 20130427
  2. PULMICORT [Suspect]
     Indication: ASTHMA
     Route: 055
     Dates: start: 201304, end: 201304
  3. PULMICORT [Suspect]
     Indication: ASTHMA
     Dosage: GENERIC, PRN
     Route: 065
  4. ALBUTEROL [Concomitant]
     Indication: ASTHMA
     Dosage: PRN
  5. SINGULAIR [Concomitant]
     Indication: ASTHMA
     Dosage: DAILY
  6. ZYRTEC [Concomitant]
     Indication: MULTIPLE ALLERGIES
     Dosage: PRN

REACTIONS (5)
  - Vomiting [Recovered/Resolved]
  - Asthma [Recovering/Resolving]
  - Cough [Recovering/Resolving]
  - Off label use [Unknown]
  - Drug ineffective [Recovering/Resolving]
